FAERS Safety Report 8397202-9 (Version None)
Quarter: 2012Q2

REPORT INFORMATION
  Report Type: 
  Country: None (occurrence: None)
  Receive Date: 20120530
  Receipt Date: 20120524
  Transmission Date: 20120825
  Serious: Yes (Hospitalization)
  Sender: FDA-Public Use
  Company Number: US-MERCK-1202USA03890

PATIENT
  Age: 50 Year
  Sex: Female

DRUGS (7)
  1. FOSAMAX PLUS D [Suspect]
     Indication: OSTEOPENIA
     Route: 048
     Dates: start: 20060705, end: 20090126
  2. CALCIUM (UNSPECIFIED) [Concomitant]
     Route: 065
  3. ASCORBIC ACID [Concomitant]
     Route: 065
  4. VITAMINS (UNSPECIFIED) [Concomitant]
     Route: 065
  5. FOSAMAX [Suspect]
     Indication: OSTEOPOROSIS
     Route: 048
     Dates: start: 20010101, end: 20090101
  6. CORTICOSTEROIDS (UNSPECIFIED) [Concomitant]
     Route: 065
     Dates: start: 19970101
  7. FOSAMAX [Suspect]
     Indication: OSTEOPENIA
     Route: 048
     Dates: start: 20010101, end: 20090101

REACTIONS (13)
  - GAIT DISTURBANCE [None]
  - FEAR [None]
  - SYNOVIAL DISORDER [None]
  - FEMUR FRACTURE [None]
  - INFECTION [None]
  - ANXIETY [None]
  - LOW TURNOVER OSTEOPATHY [None]
  - POOR QUALITY SLEEP [None]
  - MUSCULAR WEAKNESS [None]
  - DEPRESSION [None]
  - FRACTURE DISPLACEMENT [None]
  - HYPERTENSION [None]
  - FALL [None]
